FAERS Safety Report 11794572 (Version 3)
Quarter: 2016Q1

REPORT INFORMATION
  Report Type: Spontaneous
  Country: US (occurrence: US)
  Receive Date: 20151202
  Receipt Date: 20160203
  Transmission Date: 20160525
  Serious: Yes (Other)
  Sender: FDA-Public Use
  Company Number: US-BAYER-2015-480820

PATIENT
  Age: 26 Year
  Sex: Female

DRUGS (1)
  1. MIRENA [Suspect]
     Active Substance: LEVONORGESTREL
     Indication: CONTRACEPTION
     Dosage: 20 MCG/24HR, CONT
     Route: 015
     Dates: start: 20151028, end: 20151203

REACTIONS (7)
  - Pain [None]
  - Procedural pain [None]
  - Device dislocation [None]
  - Post procedural discomfort [None]
  - Procedural haemorrhage [None]
  - Abdominal pain lower [None]
  - Complication associated with device [None]

NARRATIVE: CASE EVENT DATE: 20151130
